FAERS Safety Report 13093840 (Version 3)
Quarter: 2017Q1

REPORT INFORMATION
  Report Type: Report from Study
  Country: PL (occurrence: PL)
  Receive Date: 20170106
  Receipt Date: 20170208
  Transmission Date: 20170428
  Serious: Yes (Life-Threatening, Hospitalization, Disabling, Other)
  Sender: FDA-Public Use
  Company Number: PHHY2017PL001271

PATIENT
  Age: 63 Year
  Sex: Female
  Weight: 73 kg

DRUGS (1)
  1. TASIGNA [Suspect]
     Active Substance: NILOTINIB
     Indication: CHRONIC MYELOID LEUKAEMIA
     Dosage: 2 DF, UNK
     Route: 048
     Dates: start: 20140716, end: 20161122

REACTIONS (7)
  - Palpitations [Unknown]
  - Acute myocardial infarction [Recovering/Resolving]
  - Chest pain [Recovered/Resolved]
  - Stress [Unknown]
  - Angina pectoris [Recovered/Resolved]
  - Hyperhidrosis [Unknown]
  - Musculoskeletal pain [Unknown]

NARRATIVE: CASE EVENT DATE: 20161120
